FAERS Safety Report 7743131-0 (Version None)
Quarter: 2011Q3

REPORT INFORMATION
  Report Type: 
  Country: None (occurrence: None)
  Receive Date: 20110908
  Receipt Date: 20110908
  Transmission Date: 20111222
  Serious: Yes (Hospitalization)
  Sender: FDA-Public Use
  Company Number: None

PATIENT
  Sex: Female
  Weight: 62.1428 kg

DRUGS (5)
  1. PRADAXA [Concomitant]
  2. OXYBUTIN [Concomitant]
  3. ACTONEL [Concomitant]
  4. TOPROL-XL [Concomitant]
  5. AMIODARONE HCL [Suspect]
     Indication: ATRIAL FIBRILLATION
     Dosage: 200 MG 4 X DAY
     Dates: start: 20110701, end: 20110719

REACTIONS (7)
  - VISION BLURRED [None]
  - TREMOR [None]
  - COORDINATION ABNORMAL [None]
  - WEIGHT DECREASED [None]
  - VOMITING [None]
  - NAUSEA [None]
  - TEMPERATURE INTOLERANCE [None]
